FAERS Safety Report 15299526 (Version 2)
Quarter: 2018Q3

REPORT INFORMATION
  Report Type: Report from Study
  Country: NL (occurrence: NL)
  Receive Date: 20180821
  Receipt Date: 20180827
  Transmission Date: 20181010
  Serious: Yes (Congenital Anomaly)
  Sender: FDA-Public Use
  Company Number: NL-TEVA-2018-NL-945639

PATIENT

DRUGS (1)
  1. FLUOXETINE [Suspect]
     Active Substance: FLUOXETINE HYDROCHLORIDE
     Route: 064

REACTIONS (3)
  - Abortion induced [Unknown]
  - Foetal exposure during pregnancy [Not Recovered/Not Resolved]
  - Hypoplastic left heart syndrome [Not Recovered/Not Resolved]
